FAERS Safety Report 4864003-5 (Version None)
Quarter: 2005Q4

REPORT INFORMATION
  Report Type: 
  Country: None (occurrence: None)
  Receive Date: 20051219
  Receipt Date: 20051209
  Transmission Date: 20060501
  Serious: Yes (Death)
  Sender: FDA-Public Use
  Company Number: GXKR2005NL02129

PATIENT
  Sex: Male

DRUGS (1)
  1. TEMAZEPAM [Suspect]
     Indication: INCORRECT DOSE ADMINISTERED
     Dosage: 20 TABLETS

REACTIONS (3)
  - COMPLETED SUICIDE [None]
  - DROWNING [None]
  - INTENTIONAL OVERDOSE [None]
